FAERS Safety Report 8616006 (Version 2)
Quarter: 2012Q4

REPORT INFORMATION
  Report Type: 
  Country: US (occurrence: US)
  Receive Date: 20120614
  Receipt Date: 20121219
  Transmission Date: 20130627
  Serious: No
  Sender: FDA-Public Use
  Company Number: US-AMGEN-USASP2012033320

PATIENT
  Age: 69 Year
  Sex: Female
  Weight: 62.59 kg

DRUGS (6)
  1. PROLIA [Suspect]
     Indication: OSTEOPOROSIS
     Dosage: 60 mg, q6mo
     Dates: start: 20120516
  2. WELLBUTRIN [Concomitant]
     Dosage: UNK
  3. NAPRELAN [Concomitant]
     Dosage: UNK
  4. CALCIUM [Concomitant]
     Dosage: UNK
  5. VITAMIN D [Concomitant]
     Dosage: UNK
  6. ALENDRONATE [Concomitant]
     Indication: OSTEOPOROSIS
     Dosage: UNK

REACTIONS (3)
  - Orthostatic hypertension [Not Recovered/Not Resolved]
  - Cystitis [Not Recovered/Not Resolved]
  - Vertigo [Recovered/Resolved]
